FAERS Safety Report 18361354 (Version 2)
Quarter: 2020Q4

REPORT INFORMATION
  Report Type: Spontaneous
  Country: US (occurrence: US)
  Receive Date: 20201008
  Receipt Date: 20201016
  Transmission Date: 20210114
  Serious: Yes (Death, Hospitalization)
  Sender: FDA-Public Use
  Company Number: US-BIOVITRUM-2020US5288

PATIENT
  Age: 9 Month
  Sex: Male
  Weight: 8 kg

DRUGS (14)
  1. ENALAPRILAT. [Concomitant]
     Active Substance: ENALAPRILAT
  2. SILDENAFIL CITRATE. [Concomitant]
     Active Substance: SILDENAFIL CITRATE
  3. AMLODIPINE BESYLATE. [Concomitant]
     Active Substance: AMLODIPINE BESYLATE
  4. SYNAGIS [Suspect]
     Active Substance: PALIVIZUMAB
     Indication: ADRENAL INSUFFICIENCY
  5. ASPIRIN. [Concomitant]
     Active Substance: ASPIRIN
     Dosage: LOW DOSE ASPIRIN 81 MG TABLET DR
  6. ASPIRIN. [Concomitant]
     Active Substance: ASPIRIN
     Dosage: ASPIRIN 81 MG TAB CHEW
  7. SOTALOL. [Concomitant]
     Active Substance: SOTALOL
  8. FUROSEMIDE. [Concomitant]
     Active Substance: FUROSEMIDE
  9. OXYGEN. [Concomitant]
     Active Substance: OXYGEN
  10. ENALAPRIL MALEATE. [Concomitant]
     Active Substance: ENALAPRIL MALEATE
  11. BETAPACE [Concomitant]
     Active Substance: SOTALOL HYDROCHLORIDE
  12. AMLODIPINE BESYLATE. [Concomitant]
     Active Substance: AMLODIPINE BESYLATE
  13. SYNAGIS [Suspect]
     Active Substance: PALIVIZUMAB
     Indication: PULMONARY ARTERIAL HYPERTENSION
     Route: 030
  14. SYNAGIS [Suspect]
     Active Substance: PALIVIZUMAB
     Indication: HYPOPLASTIC LEFT HEART SYNDROME

REACTIONS (2)
  - Off label use [Unknown]
  - Cardiac failure [Fatal]

NARRATIVE: CASE EVENT DATE: 20200912
